FAERS Safety Report 18627567 (Version 1)
Quarter: 2020Q4

REPORT INFORMATION
  Report Type: Spontaneous
  Country: US (occurrence: US)
  Receive Date: 20201216
  Receipt Date: 20201216
  Transmission Date: 20210114
  Serious: Yes (Disabling)
  Sender: FDA-Public Use
  Company Number: None

PATIENT
  Age: 24 Year
  Sex: Female
  Weight: 90 kg

DRUGS (13)
  1. ALOE VERA [Concomitant]
     Active Substance: ALOE VERA LEAF
  2. TACROLIMUS 0.1% [Suspect]
     Active Substance: TACROLIMUS
     Indication: ECZEMA
     Dosage: ?          QUANTITY:1 APPLICATION;?
     Route: 062
  3. LORATADINE. [Concomitant]
     Active Substance: LORATADINE
  4. HYDROCORTISONE 1% [Suspect]
     Active Substance: HYDROCORTISONE
     Indication: ECZEMA
     Dosage: ?          QUANTITY:1 APPLICATION;OTHER FREQUENCY:ONCE OR TWICE/DAY;?
     Route: 062
  5. TACROLIMUS 0.1% [Suspect]
     Active Substance: TACROLIMUS
     Indication: ECZEMA
     Dosage: QUANTITY: 1 APPLICATION
     Route: 062
  6. DANDELION [Concomitant]
     Active Substance: TARAXACUM OFFICINALE POLLEN
  7. VIT D [Concomitant]
     Active Substance: VITAMIN D NOS
  8. NEXPLANON [Concomitant]
     Active Substance: ETONOGESTREL
  9. MULTIVITAMIN [Concomitant]
     Active Substance: VITAMINS
  10. TUMERIC [Concomitant]
     Active Substance: HERBALS\TURMERIC
  11. CLOBETASOL PROPIONATE 0.05% [Suspect]
     Active Substance: CLOBETASOL PROPIONATE
  12. REISHI MUSHROOMS [Concomitant]
  13. OMEGA OILS VITAMINS [Concomitant]

REACTIONS (10)
  - Skin exfoliation [None]
  - Skin weeping [None]
  - Insomnia [None]
  - Neuralgia [None]
  - Pruritus [None]
  - Inflammation [None]
  - Eczema [None]
  - Chills [None]
  - Therapy non-responder [None]
  - Feeling hot [None]

NARRATIVE: CASE EVENT DATE: 20201027
